FAERS Safety Report 8123787-3 (Version None)
Quarter: 2012Q1

REPORT INFORMATION
  Report Type: 
  Country: None (occurrence: None)
  Receive Date: 20120208
  Receipt Date: 20120130
  Transmission Date: 20120608
  Serious: Yes (Hospitalization, Other)
  Sender: FDA-Public Use
  Company Number: US-ASTRAZENECA-2012SE06256

PATIENT
  Age: 50 Year
  Sex: Female
  Weight: 67.6 kg

DRUGS (11)
  1. PRILOSEC [Suspect]
     Route: 048
  2. CALTROL [Concomitant]
  3. NEXIUM [Suspect]
     Indication: GASTROOESOPHAGEAL REFLUX DISEASE
     Route: 048
     Dates: start: 19990101
  4. IRON SUPPLEMENT [Concomitant]
     Indication: BLOOD IRON ABNORMAL
  5. LOSARTAN POTASSIUM [Concomitant]
     Indication: BLOOD PRESSURE ABNORMAL
  6. B12 SHOT [Concomitant]
  7. CLONIDINE [Concomitant]
     Indication: BLOOD PRESSURE ABNORMAL
  8. MAGNESIUM [Concomitant]
     Dosage: BID
  9. CALCIUM [Concomitant]
     Dosage: FOUR PILLS QD
  10. ESTROGEN SHOT [Concomitant]
  11. SYNTHROID [Concomitant]

REACTIONS (7)
  - BLOOD CALCIUM DECREASED [None]
  - DYSPEPSIA [None]
  - BLOOD MAGNESIUM DECREASED [None]
  - HAEMORRHAGE [None]
  - VOMITING [None]
  - APHAGIA [None]
  - THERAPEUTIC RESPONSE UNEXPECTED [None]
